FAERS Safety Report 10666685 (Version 1)
Quarter: 2014Q4

REPORT INFORMATION
  Report Type: Spontaneous
  Country: US (occurrence: US)
  Receive Date: 20141222
  Receipt Date: 20141222
  Transmission Date: 20150529
  Serious: No
  Sender: FDA-Public Use
  Company Number: US-BRISTOL-MYERS SQUIBB COMPANY-BMS-2014-000606

PATIENT
  Sex: Female

DRUGS (1)
  1. ORENCIA [Suspect]
     Active Substance: ABATACEPT
     Indication: PRODUCT USED FOR UNKNOWN INDICATION
     Route: 065

REACTIONS (8)
  - Flushing [Unknown]
  - Malaise [Unknown]
  - Pruritus [Unknown]
  - Facial pain [Unknown]
  - Burning sensation [Unknown]
  - Erythema [Unknown]
  - Feeling abnormal [Unknown]
  - Asthenia [Unknown]
